FAERS Safety Report 25543199 (Version 7)
Quarter: 2025Q4

REPORT INFORMATION
  Report Type: Report from Study
  Country: EU (occurrence: EU)
  Receive Date: 20250711
  Receipt Date: 20251224
  Transmission Date: 20260118
  Serious: Yes (Hospitalization)
  Sender: ABBVIE
  Company Number: EU-ABBVIE-6223207

PATIENT
  Age: 57 Year
  Sex: Male
  Weight: 76 kg

DRUGS (4)
  1. FOSCARBIDOPA\FOSLEVODOPA [Suspect]
     Active Substance: FOSCARBIDOPA\FOSLEVODOPA
     Indication: Parkinson^s disease
     Dosage: DOSAGE: CRN: 0.47 ML/H, CR: 0.52 ML/H, CRH: 0.57 ML/H, ED: 0.25 ML,
     Route: 058
     Dates: start: 20250304, end: 2025
  2. FOSCARBIDOPA\FOSLEVODOPA [Suspect]
     Active Substance: FOSCARBIDOPA\FOSLEVODOPA
     Dosage: DOSAGE: CRN:0.52 ML/H, CR:0.57 ML/H, CRH:0.62 ML/H,
     Route: 058
     Dates: start: 2025, end: 2025
  3. FOSCARBIDOPA\FOSLEVODOPA [Suspect]
     Active Substance: FOSCARBIDOPA\FOSLEVODOPA
     Dosage: DOSAGE: CRN: 0.54 ML/H; CR: 0.54 ML/H; CRH: 0.54 ML/H,
     Route: 058
     Dates: start: 2025, end: 2025
  4. FOSCARBIDOPA\FOSLEVODOPA [Suspect]
     Active Substance: FOSCARBIDOPA\FOSLEVODOPA
     Dosage: DOSAGE: CRN: 0.48 ML/H, CR: 0.50 ML/H, CRH: 0.54 ML/H, ED: 0.25ML
     Route: 058
     Dates: start: 2025

REACTIONS (26)
  - Dehydration [Not Recovered/Not Resolved]
  - Musculoskeletal stiffness [Not Recovered/Not Resolved]
  - On and off phenomenon [Not Recovered/Not Resolved]
  - Weight decreased [Not Recovered/Not Resolved]
  - Hypokinesia [Unknown]
  - Fear [Not Recovered/Not Resolved]
  - Retching [Not Recovered/Not Resolved]
  - Infusion site induration [Not Recovered/Not Resolved]
  - Infusion site erythema [Not Recovered/Not Resolved]
  - Infusion site haematoma [Not Recovered/Not Resolved]
  - Therapeutic product effect incomplete [Unknown]
  - Performance status decreased [Unknown]
  - Nausea [Unknown]
  - Dizziness [Unknown]
  - Cardiovascular disorder [Unknown]
  - Musculoskeletal disorder [Recovered/Resolved]
  - Depressed mood [Unknown]
  - Anaemia [Unknown]
  - Vitamin B12 deficiency [Unknown]
  - Sensory disturbance [Unknown]
  - Infusion site nodule [Unknown]
  - Anxiety [Unknown]
  - Stress [Unknown]
  - Feeling abnormal [Unknown]
  - Neuropathy peripheral [Not Recovered/Not Resolved]
  - Nightmare [Recovering/Resolving]

NARRATIVE: CASE EVENT DATE: 20250101
